FAERS Safety Report 24290580 (Version 1)
Quarter: 2024Q3

REPORT INFORMATION
  Report Type: Spontaneous
  Country: FR (occurrence: FR)
  Receive Date: 20240906
  Receipt Date: 20240906
  Transmission Date: 20241016
  Serious: Yes (Death)
  Sender: RANBAXY
  Company Number: FR-AFSSAPS-AN2024000826

PATIENT
  Age: 58 Year
  Sex: Female
  Weight: 90 kg

DRUGS (21)
  1. AMLODIPINE [Suspect]
     Active Substance: AMLODIPINE BESYLATE
     Indication: Hypertension
     Route: 048
     Dates: start: 20240515, end: 20240520
  2. ARIPIPRAZOLE [Suspect]
     Active Substance: ARIPIPRAZOLE
     Indication: Bipolar disorder
     Dosage: 15 MILLIGRAM, DAILY
     Route: 048
     Dates: end: 20240515
  3. ARIPIPRAZOLE [Suspect]
     Active Substance: ARIPIPRAZOLE
     Dosage: 5 MILLIGRAM, DAILY
     Route: 048
     Dates: start: 20240515, end: 20240518
  4. ARIPIPRAZOLE [Suspect]
     Active Substance: ARIPIPRAZOLE
     Dosage: 15 MILLIGRAM, DAILY
     Route: 048
     Dates: start: 20240518, end: 20240520
  5. QUETIAPINE [Suspect]
     Active Substance: QUETIAPINE
     Indication: Bipolar disorder
     Dosage: 300 MILLIGRAM, DAILY
     Route: 048
     Dates: start: 20240515, end: 20240520
  6. QUETIAPINE [Suspect]
     Active Substance: QUETIAPINE
     Route: 048
     Dates: start: 20240513, end: 20240515
  7. ZOPICLONE [Suspect]
     Active Substance: ZOPICLONE
     Indication: Anxiety
     Route: 048
     Dates: end: 20240520
  8. CLOMIPRAMINE [Suspect]
     Active Substance: CLOMIPRAMINE
     Indication: Depression
     Dosage: 75 MILLIGRAM, DAILY
     Route: 048
     Dates: start: 20240515, end: 20240518
  9. CLOMIPRAMINE [Suspect]
     Active Substance: CLOMIPRAMINE
     Route: 048
     Dates: start: 20240518, end: 20240520
  10. TRIMEBUTINE [Suspect]
     Active Substance: TRIMEBUTINE
     Indication: Constipation
     Dosage: 60 MILLIGRAM, DAILY
     Route: 048
     Dates: start: 20240518, end: 20240520
  11. OXAZEPAM [Suspect]
     Active Substance: OXAZEPAM
     Indication: Anxiety
     Route: 048
     Dates: end: 20240520
  12. CYAMEMAZINE [Suspect]
     Active Substance: CYAMEMAZINE
     Indication: Depression
     Dosage: 25 MILLIGRAM, DAILY
     Route: 048
     Dates: start: 20240506, end: 20240513
  13. CYAMEMAZINE [Suspect]
     Active Substance: CYAMEMAZINE
     Dosage: 100 MILLIGRAM, DAILY
     Route: 048
     Dates: start: 20240513, end: 20240515
  14. CYAMEMAZINE [Suspect]
     Active Substance: CYAMEMAZINE
     Dosage: 170 MILLIGRAM, DAILY
     Route: 048
     Dates: start: 20240515, end: 20240520
  15. CYAMEMAZINE [Suspect]
     Active Substance: CYAMEMAZINE
     Dosage: 62.5 MILLIGRAM, DAILY
     Route: 048
     Dates: start: 20240503, end: 20240506
  16. TROPATEPINE [Suspect]
     Active Substance: TROPATEPINE
     Indication: Extrapyramidal disorder
     Dosage: 30 MILLIGRAM
     Route: 048
     Dates: start: 20240513, end: 20240520
  17. LORAZEPAM [Suspect]
     Active Substance: LORAZEPAM
     Indication: Anxiety disorder
     Dosage: 4 MILLIGRAM, DAILY
     Route: 048
     Dates: start: 20240510, end: 20240520
  18. MIRTAZAPINE [Suspect]
     Active Substance: MIRTAZAPINE
     Indication: Depression
     Dosage: 15 MILLIGRAM, DAILY
     Route: 048
     Dates: end: 20240520
  19. VENLAFAXINE [Concomitant]
     Active Substance: VENLAFAXINE HYDROCHLORIDE
     Indication: Product used for unknown indication
     Dosage: 37.5 MILLIGRAM, DAILY
     Route: 048
     Dates: start: 20240510, end: 20240515
  20. LORAZEPAM [Concomitant]
     Active Substance: LORAZEPAM
     Indication: Anxiety
     Dosage: 5 MILLIGRAM, DAILY
     Route: 048
     Dates: start: 20240510, end: 20240513
  21. ACETAMINOPHEN [Concomitant]
     Active Substance: ACETAMINOPHEN
     Indication: Product used for unknown indication
     Dosage: 3 MILLIGRAM, DAILY
     Route: 048
     Dates: start: 20240507, end: 20240511

REACTIONS (1)
  - Cardio-respiratory arrest [Fatal]

NARRATIVE: CASE EVENT DATE: 20240520
